FAERS Safety Report 22721738 (Version 3)
Quarter: 2023Q4

REPORT INFORMATION
  Report Type: Spontaneous
  Country: TR (occurrence: TR)
  Receive Date: 20230719
  Receipt Date: 20231129
  Transmission Date: 20240109
  Serious: Yes (Other)
  Sender: FDA-Public Use
  Company Number: TR-002147023-NVSC2023TR157954

PATIENT
  Age: 7 Year
  Sex: Male

DRUGS (1)
  1. ILARIS [Suspect]
     Active Substance: CANAKINUMAB
     Indication: Product used for unknown indication
     Dosage: 1 DOSAGE FORM, Q2MO
     Route: 065

REACTIONS (3)
  - Syncope [Unknown]
  - Asthenia [Unknown]
  - Product supply issue [Unknown]
